FAERS Safety Report 9573741 (Version 1)
Quarter: 2013Q4

REPORT INFORMATION
  Report Type: Report from Study
  Country: US (occurrence: US)
  Receive Date: 20131001
  Receipt Date: 20131001
  Transmission Date: 20140711
  Serious: Yes (Other)
  Sender: FDA-Public Use
  Company Number: US-JNJFOC-20130916354

PATIENT
  Age: 15 Year
  Sex: Female
  Weight: 63.9 kg

DRUGS (7)
  1. REMICADE [Suspect]
     Indication: CROHN^S DISEASE
     Route: 042
     Dates: start: 20070312
  2. METHOTREXATE [Suspect]
     Indication: CROHN^S DISEASE
     Route: 065
  3. HUMIRA [Concomitant]
     Indication: CROHN^S DISEASE
     Route: 065
     Dates: start: 20090830
  4. FOLIC ACID [Concomitant]
     Route: 065
  5. MULTIVITAMINS [Concomitant]
     Route: 065
  6. VITAMIN B2 [Concomitant]
     Route: 065
  7. CO-ENZYME Q10 [Concomitant]
     Route: 065

REACTIONS (2)
  - Abortion spontaneous [Recovered/Resolved]
  - Pregnancy [Recovered/Resolved]
